FAERS Safety Report 11417806 (Version 10)
Quarter: 2015Q4

REPORT INFORMATION
  Report Type: Report from Study
  Country: DE (occurrence: DE)
  Receive Date: 20150825
  Receipt Date: 20151014
  Transmission Date: 20160304
  Serious: Yes (Death, Hospitalization)
  Sender: FDA-Public Use
  Company Number: DE-B.I. PHARMACEUTICALS,INC./RIDGEFIELD-2015-BI-45475BI

PATIENT
  Age: 72 Year
  Sex: Female
  Weight: 58 kg

DRUGS (9)
  1. SPIRONOLACTONE. [Concomitant]
     Active Substance: SPIRONOLACTONE
     Indication: CARDIAC FAILURE
     Dosage: 50 MG
     Route: 048
     Dates: start: 20130516
  2. ADCIRCA [Concomitant]
     Active Substance: TADALAFIL
     Indication: CARDIAC FAILURE
     Dosage: 20 MG
     Route: 048
     Dates: start: 20131204
  3. SULFAMOL [Concomitant]
     Indication: DYSPNOEA
     Dosage: 1 MG
     Route: 055
     Dates: start: 201312
  4. METOCLOPRAMID [Concomitant]
     Active Substance: METOCLOPRAMIDE
     Indication: PROPHYLAXIS
     Dosage: 2 MG
     Route: 048
     Dates: start: 201405
  5. OMEP [Concomitant]
     Active Substance: OMEPRAZOLE
     Indication: PROPHYLAXIS
     Dosage: 20 MG
     Route: 048
     Dates: start: 20091222
  6. PREDNISOLON [Concomitant]
     Active Substance: PREDNISOLONE
     Indication: PULMONARY FIBROSIS
     Dosage: 5 MG
     Route: 048
     Dates: start: 20130801
  7. BIBF 1120 [Suspect]
     Active Substance: NINTEDANIB
     Indication: IDIOPATHIC PULMONARY FIBROSIS
     Dosage: 200 MG
     Route: 048
     Dates: start: 20100831, end: 20150814
  8. TOREM [Concomitant]
     Active Substance: TORSEMIDE
     Indication: CARDIAC FAILURE
     Dosage: 5 MG
     Route: 048
     Dates: start: 20130516
  9. TARGIN [Concomitant]
     Active Substance: NALOXONE HYDROCHLORIDE\OXYCODONE HYDROCHLORIDE
     Indication: DYSPNOEA
     Dosage: DOSE PER APPLICATION: 10/5 MG AND DAILY DOSE: 20/10 MG
     Route: 048
     Dates: start: 201312

REACTIONS (3)
  - Pneumonia [Fatal]
  - Gastrointestinal disorder [Unknown]
  - Multi-organ failure [Unknown]

NARRATIVE: CASE EVENT DATE: 201508
